FAERS Safety Report 7295080-2 (Version None)
Quarter: 2011Q1

REPORT INFORMATION
  Report Type: 
  Country: None (occurrence: None)
  Receive Date: 20110216
  Receipt Date: 20110210
  Transmission Date: 20110831
  Serious: Yes (Hospitalization)
  Sender: FDA-Public Use
  Company Number: US-SANOFI-AVENTIS-2010SA032583

PATIENT
  Age: 80 Year
  Sex: Male

DRUGS (20)
  1. TAXOTERE [Suspect]
     Dosage: REDUCED DOSE
     Route: 042
  2. INVESTIGATIONAL DRUG [Suspect]
     Route: 042
     Dates: start: 20070716, end: 20070716
  3. LACTOBACILLUS ACIDOPHILUS [Concomitant]
  4. DECADRON [Concomitant]
     Dates: start: 20070314
  5. INVESTIGATIONAL DRUG [Suspect]
     Route: 042
  6. ATENOLOL [Concomitant]
     Dates: start: 20060801
  7. LOPERAMIDE HYDROCHLORIDE [Concomitant]
     Dates: start: 20070409
  8. TAXOTERE [Suspect]
     Indication: PROSTATE CANCER
     Route: 042
     Dates: start: 20070625, end: 20070625
  9. OS-CAL [Concomitant]
     Dates: start: 20070301
  10. COLACE [Concomitant]
     Dates: start: 20070409
  11. SENOKOT /UNK/ [Concomitant]
     Dates: start: 20070409
  12. CALCIUM CARBONATE [Concomitant]
     Dates: start: 20070314
  13. ZOMETA [Concomitant]
     Dates: start: 20070314
  14. TAXOTERE [Suspect]
     Route: 042
     Dates: start: 20070803, end: 20070803
  15. ZETIA [Concomitant]
     Dates: start: 20060101
  16. INVESTIGATIONAL DRUG [Suspect]
     Indication: PROSTATE CANCER
     Route: 042
     Dates: start: 20070625, end: 20070625
  17. PREDNISONE [Suspect]
     Indication: PROSTATE CANCER
     Route: 048
     Dates: start: 20070625
  18. VASOTEC [Concomitant]
     Dates: start: 20050101
  19. LUPRON [Concomitant]
     Dates: start: 20020901
  20. NEXIUM [Concomitant]

REACTIONS (3)
  - NEUTROPENIA [None]
  - HYPONATRAEMIA [None]
  - CHEST PAIN [None]
